FAERS Safety Report 7907385-X (Version None)
Quarter: 2011Q4

REPORT INFORMATION
  Report Type: 
  Country: None (occurrence: None)
  Receive Date: 20111110
  Receipt Date: 20111028
  Transmission Date: 20120403
  Serious: Yes (Hospitalization)
  Sender: FDA-Public Use
  Company Number: CN-MYLANLABS-2011S1022756

PATIENT
  Age: 6 Decade
  Sex: Female

DRUGS (3)
  1. MIRTAZAPINE [Suspect]
     Indication: DEPRESSION
     Dosage: 30 MG/DAY; THEN INCREASED TO 45 MG/DAY OVER TWO WEEKS
     Route: 065
  2. CLONAZEPAM [Concomitant]
     Indication: INSOMNIA
     Dosage: 5MG REGULARLY BEFORE SLEEP
     Route: 065
  3. MIRTAZAPINE [Suspect]
     Dosage: 45 MG/DAY
     Route: 065

REACTIONS (2)
  - PULMONARY EMBOLISM [None]
  - DEEP VEIN THROMBOSIS [None]
